FAERS Safety Report 9337203 (Version 6)
Quarter: 2013Q4

REPORT INFORMATION
  Report Type: Spontaneous
  Country: US (occurrence: US)
  Receive Date: 20130607
  Receipt Date: 20131112
  Transmission Date: 20140711
  Serious: Yes (Hospitalization, Other)
  Sender: FDA-Public Use
  Company Number: US-UCBSA-086324

PATIENT
  Age: 18 Year
  Sex: Male

DRUGS (1)
  1. CIMZIA [Suspect]
     Indication: CROHN^S DISEASE
     Dosage: EXPIRY DATE: ??/NOV/2015
     Route: 058
     Dates: start: 20121227

REACTIONS (13)
  - Small intestinal obstruction [Unknown]
  - Stoma site infection [Recovered/Resolved]
  - Crohn^s disease [Recovered/Resolved]
  - Abdominal pain [Not Recovered/Not Resolved]
  - Vomiting [Unknown]
  - Anaemia [Unknown]
  - Gastrointestinal stoma complication [Unknown]
  - Weight decreased [Unknown]
  - Nausea [Unknown]
  - Drug dependence [Unknown]
  - Decreased appetite [Unknown]
  - Drug dose omission [Unknown]
  - Inappropriate schedule of drug administration [Unknown]
